FAERS Safety Report 4886286-8 (Version None)
Quarter: 2006Q1

REPORT INFORMATION
  Report Type: 
  Country: None (occurrence: None)
  Receive Date: 20060120
  Receipt Date: 20050304
  Transmission Date: 20060701
  Serious: Yes (Hospitalization, Disabling)
  Sender: FDA-Public Use
  Company Number: US-MERCK-0503USA01029

PATIENT
  Age: 60 Year
  Sex: Female
  Weight: 68 kg

DRUGS (8)
  1. VIOXX [Suspect]
     Indication: ARTHRITIS
     Route: 048
     Dates: start: 20010401, end: 20040801
  2. VIOXX [Suspect]
     Route: 048
     Dates: start: 20010401, end: 20040801
  3. TRAMADOL HYDROCHLORIDE [Concomitant]
     Route: 065
  4. ZONEGRAN [Concomitant]
     Route: 065
  5. PREMPRO [Concomitant]
     Route: 065
  6. TRAZODONE HYDROCHLORIDE [Concomitant]
     Route: 065
  7. AMBIEN [Concomitant]
     Route: 065
  8. FLEXERIL [Concomitant]
     Route: 065

REACTIONS (6)
  - ATRIAL FIBRILLATION [None]
  - CARDIAC FAILURE [None]
  - DISABILITY [None]
  - MYOCARDIAL INFARCTION [None]
  - THROMBOSIS [None]
  - ULCER HAEMORRHAGE [None]
